FAERS Safety Report 6464900-3 (Version None)
Quarter: 2009Q4

REPORT INFORMATION
  Report Type: 
  Country: None (occurrence: None)
  Receive Date: 20091201
  Receipt Date: 20091124
  Transmission Date: 20100525
  Serious: Yes (Other)
  Sender: FDA-Public Use
  Company Number: B0596414A

PATIENT
  Sex: Female
  Weight: 69.5 kg

DRUGS (10)
  1. AVANDIA [Suspect]
     Indication: FATIGUE
     Dosage: 4MG PER DAY
     Route: 065
     Dates: start: 20030301, end: 20091001
  2. GLUCOPHAGE [Concomitant]
     Indication: DRUG USE FOR UNKNOWN INDICATION
     Dosage: 850MG THREE TIMES PER DAY
     Route: 065
  3. TEVETEN [Concomitant]
     Dosage: 600MG PER DAY
     Route: 065
  4. TIMOLOL [Concomitant]
     Route: 065
  5. ANAFRANIL [Concomitant]
     Route: 065
  6. LIPITOR [Concomitant]
     Dosage: 20MG PER DAY
     Route: 065
  7. NEUROBION [Concomitant]
     Route: 065
  8. STILNOCT [Concomitant]
     Route: 065
  9. ASPIRIN [Concomitant]
     Dosage: 100MG PER DAY
     Route: 065
  10. PARIET [Concomitant]
     Dosage: 10MG PER DAY
     Route: 065

REACTIONS (6)
  - ANAEMIA [None]
  - HAEMATOCRIT DECREASED [None]
  - HAEMOGLOBIN DECREASED [None]
  - RED BLOOD CELL COUNT DECREASED [None]
  - WEIGHT DECREASED [None]
  - WHITE BLOOD CELL COUNT DECREASED [None]
